FAERS Safety Report 23140357 (Version 4)
Quarter: 2024Q3

REPORT INFORMATION
  Report Type: Spontaneous
  Country: CO (occurrence: CO)
  Receive Date: 20231102
  Receipt Date: 20240819
  Transmission Date: 20241017
  Serious: Yes (Death, Hospitalization, Disabling, Other)
  Sender: SANDOZ
  Company Number: CO-002147023-PHHY2019CO192918

PATIENT
  Age: 91 Year
  Sex: Female
  Weight: 70 kg

DRUGS (14)
  1. RUXOLITINIB [Suspect]
     Active Substance: RUXOLITINIB
     Dosage: 10 MG, QD
     Route: 048
  2. RUXOLITINIB [Suspect]
     Active Substance: RUXOLITINIB
     Indication: Polycythaemia vera
     Dosage: 10 MG, Q12H
     Route: 048
     Dates: start: 20190730
  3. RUXOLITINIB [Suspect]
     Active Substance: RUXOLITINIB
     Dosage: 10 MG, Q12H
     Route: 048
     Dates: start: 20200107, end: 20240812
  4. RUXOLITINIB [Suspect]
     Active Substance: RUXOLITINIB
     Dosage: 10 MG, Q12H
     Route: 048
  5. RUXOLITINIB [Suspect]
     Active Substance: RUXOLITINIB
     Dosage: 20 MG, QD
     Route: 048
     Dates: end: 202101
  6. RUXOLITINIB [Suspect]
     Active Substance: RUXOLITINIB
     Dosage: 20 MG, QD
     Route: 048
  7. RUXOLITINIB [Suspect]
     Active Substance: RUXOLITINIB
     Dosage: 20 MG, QD
     Route: 048
  8. RUXOLITINIB [Suspect]
     Active Substance: RUXOLITINIB
     Dosage: 5 MG, Q12H
     Route: 048
  9. RUXOLITINIB [Suspect]
     Active Substance: RUXOLITINIB
     Dosage: 5 MG, Q12H
     Route: 048
  10. RUXOLITINIB [Suspect]
     Active Substance: RUXOLITINIB
     Dosage: UNK, Q12H
     Route: 048
  11. RUXOLITINIB [Suspect]
     Active Substance: RUXOLITINIB
     Dosage: UNK
     Route: 048
  12. LOSARTAN [Suspect]
     Active Substance: LOSARTAN\LOSARTAN POTASSIUM
     Dosage: 100 MG, QD, 100 MG, QD (1 TABLET DAILY)
     Route: 048
  13. LOSARTAN [Suspect]
     Active Substance: LOSARTAN\LOSARTAN POTASSIUM
     Indication: Hypertension
     Dosage: 50 MG, Q12H
     Route: 048
  14. PANTOPRAZOLE [Suspect]
     Active Substance: PANTOPRAZOLE
     Indication: Diverticulitis
     Dosage: 20 MG, QD
     Route: 048

REACTIONS (26)
  - Renal failure [Fatal]
  - Abdominal distension [Fatal]
  - Infection [Fatal]
  - Cerebral ischaemia [Unknown]
  - Somnolence [Unknown]
  - Disorientation [Unknown]
  - Asthenia [Unknown]
  - Pain [Unknown]
  - Headache [Recovered/Resolved]
  - Illness [Unknown]
  - Diverticular perforation [Unknown]
  - Haemorrhage [Unknown]
  - Insomnia [Not Recovered/Not Resolved]
  - Anaemia [Unknown]
  - Herpes zoster [Unknown]
  - Malaise [Unknown]
  - Haemoglobin decreased [Unknown]
  - Abdominal pain upper [Unknown]
  - Erythema [Not Recovered/Not Resolved]
  - Pruritus [Not Recovered/Not Resolved]
  - Vomiting [Unknown]
  - Product prescribing error [Unknown]
  - Wrong technique in product usage process [Unknown]
  - Product use in unapproved indication [Unknown]
  - Product availability issue [Unknown]
  - Off label use [Unknown]

NARRATIVE: CASE EVENT DATE: 20210201
